FAERS Safety Report 9367781 (Version 1)
Quarter: 2013Q2

REPORT INFORMATION
  Report Type: Spontaneous
  Country: US (occurrence: US)
  Receive Date: 20130625
  Receipt Date: 20130625
  Transmission Date: 20140414
  Serious: No
  Sender: FDA-Public Use
  Company Number: US-ASTELLAS-2012US009749

PATIENT
  Sex: Female
  Weight: 60 kg

DRUGS (4)
  1. VESICARE [Suspect]
     Indication: URINARY INCONTINENCE
     Dosage: 5 MG, UID/QD
     Route: 048
     Dates: start: 201206
  2. VESICARE [Suspect]
     Dosage: 1/2 TO 1/4 TABLET
     Route: 048
  3. ARAVA [Concomitant]
     Indication: RHEUMATOID ARTHRITIS
     Dosage: 10 MG, UID/QD
     Route: 048
     Dates: start: 2010
  4. METHOTREXATE [Concomitant]
     Indication: RHEUMATOID ARTHRITIS
     Dosage: 10 MG, WEEKLY
     Route: 048
     Dates: start: 2010

REACTIONS (3)
  - Wrong technique in drug usage process [Unknown]
  - Nasal dryness [Recovering/Resolving]
  - Dry mouth [Recovering/Resolving]
